FAERS Safety Report 12426993 (Version 1)
Quarter: 2016Q2

REPORT INFORMATION
  Report Type: Spontaneous
  Country: US (occurrence: US)
  Receive Date: 20160601
  Receipt Date: 20160601
  Transmission Date: 20160815
  Serious: No
  Sender: FDA-Public Use
  Company Number: US-SEPTODONT-201502898

PATIENT
  Age: 31 Year
  Sex: Female
  Weight: 68 kg

DRUGS (2)
  1. SYNTHROID [Concomitant]
     Active Substance: LEVOTHYROXINE SODIUM
  2. SEPTOCAINE AND EPINEPHRINE [Suspect]
     Active Substance: ARTICAINE HYDROCHLORIDE\EPINEPHRINE BITARTRATE
     Indication: LOCAL ANAESTHESIA
     Dosage: 1 CARTRIDGE
     Route: 004

REACTIONS (3)
  - Tongue necrosis [Recovered/Resolved]
  - Oral disorder [Recovered/Resolved]
  - Burning sensation [Recovered/Resolved]
